FAERS Safety Report 22275238 (Version 2)
Quarter: 2023Q2

REPORT INFORMATION
  Report Type: Report from Study
  Country: GB (occurrence: GB)
  Receive Date: 20230502
  Receipt Date: 20230503
  Transmission Date: 20230721
  Serious: Yes (Death, Other)
  Sender: FDA-Public Use
  Company Number: GB-PFIZER INC-202300175064

PATIENT

DRUGS (16)
  1. DOXORUBICIN HYDROCHLORIDE [Suspect]
     Active Substance: DOXORUBICIN HYDROCHLORIDE
     Indication: Burkitt^s lymphoma
     Dosage: 40 MG/M2, CYCLIC (DAY 1)
     Route: 042
  2. VINCRISTINE SULFATE [Suspect]
     Active Substance: VINCRISTINE SULFATE
     Indication: Burkitt^s lymphoma
     Dosage: 1.5 MG/M2, CYCLIC (MAX 2 MG, DAY 1 AND DAY 8)
     Route: 042
  3. METHOTREXATE SODIUM [Suspect]
     Active Substance: METHOTREXATE SODIUM
     Indication: Burkitt^s lymphoma
     Dosage: UNK, CYCLIC (DAY 10 CODOX-M REGIMEN)
     Route: 042
  4. METHOTREXATE SODIUM [Suspect]
     Active Substance: METHOTREXATE SODIUM
     Dosage: 12 MG, CYCLIC (DAY 15 CODOX-M REGIMEN)
     Route: 037
  5. METHOTREXATE SODIUM [Suspect]
     Active Substance: METHOTREXATE SODIUM
     Dosage: 12 MG, CYCLIC (DAY 5 IVAC REGIMEN)
     Route: 037
  6. ETOPOSIDE [Suspect]
     Active Substance: ETOPOSIDE
     Indication: Burkitt^s lymphoma
     Dosage: 60 MG/M2, CYCLIC (DAILY ON DAYS 1 TO 5 OVER 1 H)
     Route: 042
  7. CYTARABINE [Suspect]
     Active Substance: CYTARABINE
     Indication: Burkitt^s lymphoma
     Dosage: 70 MG, CYCLIC (DAY 1 AND DAY 3 CODOX-M REGIMEN)
     Route: 037
  8. CYTARABINE [Suspect]
     Active Substance: CYTARABINE
     Dosage: UNK, CYCLIC (ON DAYS 1 TO 2 IVAC REGIMEN)
     Route: 042
  9. LEUCOVORIN CALCIUM [Suspect]
     Active Substance: LEUCOVORIN CALCIUM
     Indication: Burkitt^s lymphoma
     Dosage: 15 MG/M2, CYCLIC (DAY 11 36 H AFTER MTX AND CONTINUED UNTIL MTX LEVEL WAS LESS THAN 5 X 10^-8 M)
     Route: 042
  10. LEUCOVORIN CALCIUM [Suspect]
     Active Substance: LEUCOVORIN CALCIUM
     Dosage: 15 MG, CYCLIC (DAY 16 24 H AFTER IT MTX; CODOX M REGIMEN)
     Route: 048
  11. LEUCOVORIN CALCIUM [Suspect]
     Active Substance: LEUCOVORIN CALCIUM
     Dosage: 15 MG, CYCLIC (DAY 6 IVAC REGIMEN)
     Route: 048
  12. IFOSFAMIDE [Suspect]
     Active Substance: IFOSFAMIDE
     Indication: Burkitt^s lymphoma
     Dosage: UNK, CYCLIC (ON DAYS 1 TO 5)
     Route: 042
  13. CYCLOPHOSPHAMIDE [Suspect]
     Active Substance: CYCLOPHOSPHAMIDE
     Indication: Burkitt^s lymphoma
     Dosage: 800 MG/M2, CYCLIC (DAY 1)
     Route: 042
  14. CYCLOPHOSPHAMIDE [Suspect]
     Active Substance: CYCLOPHOSPHAMIDE
     Dosage: 200 MG/M2, CYCLIC (DAY 2 TO 5 DAILY)
     Route: 042
  15. MESNA [Suspect]
     Active Substance: MESNA
     Indication: Burkitt^s lymphoma
     Dosage: UNK, CYCLIC (ON DAYS 1 TO 5)
     Route: 042
  16. GRANULOCYTE COLONY-STIMULATING FACTOR NOS [Suspect]
     Active Substance: GRANULOCYTE COLONY-STIMULATING FACTOR NOS
     Indication: Burkitt^s lymphoma
     Dosage: 5 UG/KG, AS NEEDED (DAILY UNTIL GRANULOCYTE COUNT } 1 X 10^9/L THEN DISCONTINUE)
     Route: 058

REACTIONS (1)
  - Death [Fatal]
